FAERS Safety Report 10273061 (Version 1)
Quarter: 2014Q1

REPORT INFORMATION
  Report Type: Spontaneous
  Country: US (occurrence: None)
  Receive Date: 20140306
  Receipt Date: 20140306
  Transmission Date: 20141002
  Serious: Yes (Other)
  Sender: FDA-Public Use
  Company Number: 163-21880-13083449

PATIENT
  Age: 74 Year
  Sex: Male
  Weight: 77.1 kg

DRUGS (12)
  1. REVLIMID (LENALIDOMIDE) (25 MILLIGRAM, CAPSULES) [Suspect]
     Indication: B-CELL LYMPHOMA
     Route: 048
     Dates: start: 20130607
  2. ACYCLOVIR [Concomitant]
  3. ASPIRIN (ACETYLSALICYLIC ACID) [Concomitant]
  4. EYE HEALTH [Concomitant]
  5. FISH OIL CONCENTRATE [Concomitant]
  6. HYDROCODONE -ACETAMINOPHEN (VICODIN) [Concomitant]
  7. LEVOFLOXACIN [Concomitant]
  8. LIDOCAIN-PRILOCAIN (EMLA) [Concomitant]
  9. MULTIVITAMIN [Concomitant]
  10. SULFAMETHOXAZOLE-TRIMETHOPRIM (BACTRIM) [Concomitant]
  11. TRAZODONE [Concomitant]
  12. VITAMIN D (ERGOCALCITROL) [Concomitant]

REACTIONS (4)
  - Pancytopenia [None]
  - Fatigue [None]
  - Platelet count decreased [None]
  - Neutrophil count decreased [None]
